FAERS Safety Report 9144415 (Version 1)
Quarter: 2013Q1

REPORT INFORMATION
  Report Type: Spontaneous
  Country: IN (occurrence: IN)
  Receive Date: 20130306
  Receipt Date: 20130306
  Transmission Date: 20140127
  Serious: Yes (Other)
  Sender: FDA-Public Use
  Company Number: IN-ROCHE-1196083

PATIENT
  Age: 47 Year
  Sex: Female

DRUGS (6)
  1. HERCEPTIN [Suspect]
     Indication: BREAST CANCER
     Route: 065
     Dates: start: 20120815
  2. HERCEPTIN [Suspect]
     Route: 065
     Dates: start: 20120825, end: 20121212
  3. XELODA [Suspect]
     Indication: BREAST CANCER
     Route: 065
     Dates: start: 20120815
  4. XELODA [Suspect]
     Route: 065
     Dates: start: 20120825, end: 20121212
  5. LAPATINIB [Suspect]
     Indication: BREAST CANCER
     Route: 065
     Dates: start: 20120809
  6. LAPATINIB [Suspect]
     Route: 065
     Dates: start: 20120825, end: 20121212

REACTIONS (1)
  - Cholecystitis acute [Unknown]
